FAERS Safety Report 13457647 (Version 1)
Quarter: 2017Q2

REPORT INFORMATION
  Report Type: Report from Study
  Country: MX (occurrence: MX)
  Receive Date: 20170419
  Receipt Date: 20170419
  Transmission Date: 20170830
  Serious: Yes (Other)
  Sender: FDA-Public Use
  Company Number: MX-SA-2017SA068539

PATIENT
  Age: 68 Year
  Sex: Female
  Weight: 64 kg

DRUGS (2)
  1. METFORMIN/GLIBENCLAMIDE [Concomitant]
     Indication: DIABETES MELLITUS
     Route: 048
     Dates: start: 1997
  2. AVALIDE [Suspect]
     Active Substance: HYDROCHLOROTHIAZIDE\IRBESARTAN
     Indication: HYPERTENSION
     Route: 048
     Dates: start: 2011

REACTIONS (2)
  - Tachycardia [Recovered/Resolved]
  - Anterograde amnesia [Not Recovered/Not Resolved]

NARRATIVE: CASE EVENT DATE: 2016
